FAERS Safety Report 12256486 (Version 1)
Quarter: 2016Q2

REPORT INFORMATION
  Report Type: Spontaneous
  Country: US (occurrence: US)
  Receive Date: 20160412
  Receipt Date: 20160412
  Transmission Date: 20160815
  Serious: Yes (Hospitalization, Disabling)
  Sender: FDA-Public Use
  Company Number: US-ENDO PHARMACEUTICALS INC.-2016-000812

PATIENT
  Age: 58 Year
  Sex: Male
  Weight: 100.33 kg

DRUGS (1)
  1. TESTIM [Suspect]
     Active Substance: TESTOSTERONE
     Indication: ANDROGEN REPLACEMENT THERAPY
     Route: 062
     Dates: start: 20070129, end: 20070301

REACTIONS (7)
  - Angina pectoris [Unknown]
  - Deep vein thrombosis [Not Recovered/Not Resolved]
  - Myocardial infarction [Unknown]
  - Pulmonary embolism [Not Recovered/Not Resolved]
  - Cardiovascular disorder [Unknown]
  - Hernia [Unknown]
  - Angiopathy [Unknown]

NARRATIVE: CASE EVENT DATE: 20070208
